FAERS Safety Report 24842548 (Version 2)
Quarter: 2025Q2

REPORT INFORMATION
  Report Type: Spontaneous
  Country: US (occurrence: US)
  Receive Date: 20250115
  Receipt Date: 20250403
  Transmission Date: 20250716
  Serious: No
  Sender: BIOGEN
  Company Number: US-BIOGEN-2025BI01296137

PATIENT

DRUGS (2)
  1. ZURZUVAE [Suspect]
     Active Substance: ZURANOLONE
     Indication: Product used for unknown indication
     Route: 050
  2. ZURZUVAE [Suspect]
     Active Substance: ZURANOLONE
     Route: 050
     Dates: start: 2025

REACTIONS (6)
  - Time perception altered [Unknown]
  - Somnolence [Unknown]
  - Fatigue [Unknown]
  - Middle insomnia [Unknown]
  - Anxiety [Unknown]
  - Memory impairment [Unknown]
